FAERS Safety Report 19929335 (Version 2)
Quarter: 2021Q4

REPORT INFORMATION
  Report Type: Report from Study
  Country: None (occurrence: CA)
  Receive Date: 20211007
  Receipt Date: 20211010
  Transmission Date: 20220303
  Serious: Yes (Other)
  Sender: FDA-Public Use
  Company Number: CA-ABBVIE-21K-028-4109811-00

PATIENT
  Sex: Female

DRUGS (1)
  1. HUMIRA [Suspect]
     Active Substance: ADALIMUMAB
     Indication: Crohn^s disease
     Route: 058
     Dates: start: 20181227

REACTIONS (5)
  - Gastrointestinal obstruction [Unknown]
  - Intestinal haemorrhage [Unknown]
  - Feeling hot [Unknown]
  - Gastrointestinal scarring [Unknown]
  - Diarrhoea [Unknown]
